FAERS Safety Report 7461438-1 (Version None)
Quarter: 2011Q2

REPORT INFORMATION
  Report Type: 
  Country: None (occurrence: None)
  Receive Date: 20110428
  Receipt Date: 20110419
  Transmission Date: 20111010
  Serious: No
  Sender: FDA-Public Use
  Company Number: 2011-00204

PATIENT
  Age: 67 Year
  Sex: Male
  Weight: 74.8435 kg

DRUGS (1)
  1. ZICAM COLD REMEDY NASAL GEL [Suspect]
     Dates: start: 19970101

REACTIONS (3)
  - DISEASE PROGRESSION [None]
  - ANOSMIA [None]
  - DEMENTIA ALZHEIMER'S TYPE [None]
